FAERS Safety Report 5359764-5 (Version None)
Quarter: 2007Q2

REPORT INFORMATION
  Report Type: 
  Country: None (occurrence: None)
  Receive Date: 20070615
  Receipt Date: 20070605
  Transmission Date: 20071010
  Serious: Yes (Other)
  Sender: FDA-Public Use
  Company Number: US-PFIZER INC-2007048024

PATIENT
  Sex: Female
  Weight: 63.181 kg

DRUGS (2)
  1. CHANTIX [Suspect]
     Indication: SMOKING CESSATION THERAPY
  2. PREMARIN [Concomitant]

REACTIONS (2)
  - HYPERSENSITIVITY [None]
  - LARYNGOSPASM [None]
